FAERS Safety Report 10165219 (Version 2)
Quarter: 2014Q2

REPORT INFORMATION
  Report Type: Spontaneous
  Country: US (occurrence: US)
  Receive Date: 20140510
  Receipt Date: 20140510
  Transmission Date: 20141212
  Serious: Yes (Other)
  Sender: FDA-Public Use
  Company Number: US-BRISTOL-MYERS SQUIBB COMPANY-19784297

PATIENT
  Age: 42 Year
  Sex: Male

DRUGS (5)
  1. BYDUREON [Suspect]
     Indication: TYPE 2 DIABETES MELLITUS
     Route: 058
     Dates: start: 20130826, end: 20131029
  2. METFORMIN [Concomitant]
  3. ASPIRIN [Concomitant]
     Indication: CARDIAC DISORDER
     Dates: start: 20130114
  4. ENALAPRIL [Concomitant]
     Indication: HYPERTENSION
     Dates: start: 20120108
  5. FISH OIL [Concomitant]
     Indication: HYPERLIPIDAEMIA
     Dosage: 2TAB

REACTIONS (2)
  - Drug eruption [Recovered/Resolved]
  - Angioedema [Recovered/Resolved]
